FAERS Safety Report 18575191 (Version 1)
Quarter: 2020Q4

REPORT INFORMATION
  Report Type: Spontaneous
  Country: US (occurrence: US)
  Receive Date: 20201203
  Receipt Date: 20201203
  Transmission Date: 20210114
  Serious: Yes (Other)
  Sender: FDA-Public Use
  Company Number: US-PFIZER INC-2020475790

PATIENT
  Age: 25 Year
  Sex: Female
  Weight: 58.97 kg

DRUGS (3)
  1. PREDNISONE. [Concomitant]
     Active Substance: PREDNISONE
     Dosage: 40 MG, DAILY (30MG IN THE MORNING AND 10MG AT NIGHT)
     Dates: start: 202010
  2. XELJANZ [Suspect]
     Active Substance: TOFACITINIB CITRATE
     Indication: CROHN^S DISEASE
     Dosage: 10 MG, 2X/DAY
     Route: 048
     Dates: start: 202010
  3. VITAMIN D3 [Concomitant]
     Active Substance: CHOLECALCIFEROL
     Dosage: 5000 IU, 1X/DAY
     Dates: start: 202010

REACTIONS (6)
  - Lip swelling [Not Recovered/Not Resolved]
  - Cheilitis [Unknown]
  - Pain [Unknown]
  - Gingival swelling [Unknown]
  - Off label use [Unknown]
  - Vaginal abscess [Recovered/Resolved]

NARRATIVE: CASE EVENT DATE: 202010
